FAERS Safety Report 7061701-2 (Version None)
Quarter: 2010Q4

REPORT INFORMATION
  Report Type: 
  Country: None (occurrence: None)
  Receive Date: 20101026
  Receipt Date: 20101015
  Transmission Date: 20110411
  Serious: Yes (Hospitalization, Other)
  Sender: FDA-Public Use
  Company Number: JP-ROCHE-686468

PATIENT
  Age: 74 Year
  Sex: Male
  Weight: 55 kg

DRUGS (6)
  1. PEGASYS [Suspect]
     Indication: HEPATITIS C
     Route: 058
     Dates: start: 20040123, end: 20100115
  2. ALDACTONE [Concomitant]
     Dosage: REPORTED FORM: PERORAL AGENT
     Route: 048
  3. DIGOSIN [Concomitant]
     Dosage: REPORTED FORM: UNCERTAINTY
  4. ZANTAC [Concomitant]
     Dosage: REPORTED FORM: UNCERTAINTY
     Dates: start: 20080201
  5. URSO 250 [Concomitant]
     Dosage: REPORTED FORM: PERORAL AGENT
     Route: 048
  6. LASIX [Concomitant]
     Dosage: REPORTED FORM: UNCERTAINTY

REACTIONS (2)
  - CARDIAC FAILURE [None]
  - INTERSTITIAL LUNG DISEASE [None]
